FAERS Safety Report 4808977-7 (Version None)
Quarter: 2005Q4

REPORT INFORMATION
  Report Type: 
  Country: None (occurrence: None)
  Receive Date: 20051025
  Receipt Date: 20051020
  Transmission Date: 20060501
  Serious: Yes (Other)
  Sender: FDA-Public Use
  Company Number: GB-ROCHE-422177

PATIENT
  Age: 76 Year
  Sex: Male
  Weight: 107 kg

DRUGS (9)
  1. XENICAL [Suspect]
     Indication: OBESITY
     Route: 048
     Dates: start: 20050802, end: 20051017
  2. WARFARIN [Concomitant]
  3. HUMULIN [Concomitant]
  4. METFORMIN [Concomitant]
  5. PANTOPRAZOLE [Concomitant]
  6. CODEINE PHOSPHATE AND ACETAMINOPHEN [Concomitant]
  7. ATORVASTATIN [Concomitant]
  8. LISINOPRIL [Concomitant]
  9. SODIUM [Concomitant]

REACTIONS (2)
  - ABDOMINAL PAIN UPPER [None]
  - BLOOD URINE PRESENT [None]
